FAERS Safety Report 12679943 (Version 1)
Quarter: 2016Q3

REPORT INFORMATION
  Report Type: Spontaneous
  Country: US (occurrence: None)
  Receive Date: 20160823
  Receipt Date: 20160823
  Transmission Date: 20161109
  Serious: No
  Sender: FDA-Public Use
  Company Number: None

PATIENT
  Age: 35 Year
  Sex: Male
  Weight: 99.79 kg

DRUGS (5)
  1. ASPIRIN. [Concomitant]
     Active Substance: ASPIRIN
  2. TECNU [Concomitant]
  3. IBUPROFEREN [Concomitant]
  4. OLLY [Concomitant]
  5. CALAMINE PLUS PRAMOXINE HCL [Suspect]
     Active Substance: FERRIC OXIDE RED\PRAMOXINE HYDROCHLORIDE\ZINC OXIDE
     Indication: DERMATITIS CONTACT
     Dosage: 2 OUNCE(S) AS NEEDED APPLIED TO A SURFACE, USUALLY THE SKIN
     Route: 061
     Dates: start: 20160815, end: 20160821

REACTIONS (5)
  - Erythema [None]
  - Application site irritation [None]
  - Rash [None]
  - Discomfort [None]
  - Skin burning sensation [None]

NARRATIVE: CASE EVENT DATE: 20160819
